FAERS Safety Report 16873281 (Version 1)
Quarter: 2019Q4

REPORT INFORMATION
  Report Type: Spontaneous
  Country: IT (occurrence: IT)
  Receive Date: 20191001
  Receipt Date: 20191001
  Transmission Date: 20200122
  Serious: Yes (Hospitalization)
  Sender: FDA-Public Use
  Company Number: IT-ASTRAZENECA-2019SF35673

PATIENT
  Age: 39 Year
  Sex: Female

DRUGS (1)
  1. SEROQUEL [Suspect]
     Active Substance: QUETIAPINE FUMARATE
     Dosage: INTAKE OF 120 PROLONGED-RELEASE TABLETS OF SEROQUEL 50 MG
     Route: 048
     Dates: start: 20190325

REACTIONS (1)
  - Substance abuse [Recovered/Resolved]

NARRATIVE: CASE EVENT DATE: 20190325
